FAERS Safety Report 20675263 (Version 1)
Quarter: 2022Q2

REPORT INFORMATION
  Report Type: Spontaneous
  Country: GB (occurrence: GB)
  Receive Date: 20220405
  Receipt Date: 20220405
  Transmission Date: 20220720
  Serious: Yes (Hospitalization)
  Sender: FDA-Public Use
  Company Number: None

PATIENT
  Age: 59 Year
  Sex: Male

DRUGS (14)
  1. METFORMIN [Suspect]
     Active Substance: METFORMIN HYDROCHLORIDE
     Indication: Product used for unknown indication
     Dosage: 1 GRAM, AM (1G OD IN MORNING)
  2. AMLODIPINE [Concomitant]
     Active Substance: AMLODIPINE BESYLATE
     Dosage: 1 DOSAGE FORM, AM (1 OD IN MORNING)
  3. ATORVASTATIN [Concomitant]
     Active Substance: ATORVASTATIN
     Dosage: 1 DOSAGE FORM, HS (1 OD AT NIGHT)
  4. ENOXAPARIN [Concomitant]
     Active Substance: ENOXAPARIN
     Dosage: 40 MILLIGRAM, AM (40MG OD IN MORNING)
  5. HALOPERIDOL [Concomitant]
     Active Substance: HALOPERIDOL
     Dosage: 1.5 MILLIGRAM, AM (1.5MG MORNING + 3MG EVENING)
  6. HALOPERIDOL [Concomitant]
     Active Substance: HALOPERIDOL
     Dosage: 3 MILLIGRAM, PM (1.5MG MORNING + 3MG EVENING)
  7. LACTULOSE [Concomitant]
     Active Substance: LACTULOSE
     Dosage: 20 MILLILITER, TID (20ML TDS (MORNING, AFTERNOON, TEATIME))
  8. NITROFURANTOIN [Concomitant]
     Active Substance: NITROFURANTOIN
     Dosage: 1 DOSAGE FORM, BID (1 BD MORNING AND NIGHT)
     Dates: start: 20220201, end: 20220208
  9. PROCYCLIDINE [Concomitant]
     Active Substance: PROCYCLIDINE
     Dosage: 1 DOSAGE FORM, TID (1 TDS (09.00, 13.00 + 21.00)
  10. FOLIC ACID [Concomitant]
     Active Substance: FOLIC ACID
     Dosage: 5 MILLIGRAM, AM (5MG OD MORNING)
  11. ENSURE COMPACT [Concomitant]
     Dosage: UNK, TID (VARIOUS FLAVOURS) 1 BOTTLE TDS)
  12. POLYETHYLENE GLYCOL 3350\POTASSIUM CHLORIDE\SODIUM BICARBONATE\SODIUM [Concomitant]
     Active Substance: POLYETHYLENE GLYCOL 3350\POTASSIUM CHLORIDE\SODIUM BICARBONATE\SODIUM CHLORIDE
     Dosage: UNK, BID (1 SACHET BD MORNING + NIGHT)
  13. SENNA [Concomitant]
     Active Substance: SENNA LEAF\SENNOSIDES\SENNOSIDES A AND B
     Dosage: 2 DOSAGE FORM, HS (2 AT NIGHT)
  14. CALCIUM CARBONATE\CHOLECALCIFEROL [Concomitant]
     Active Substance: CALCIUM CARBONATE\CHOLECALCIFEROL
     Dosage: 1 DOSAGE FORM, BID (1 BD MORNING + AFTERNOON)

REACTIONS (2)
  - Acute kidney injury [Unknown]
  - Lactic acidosis [Recovered/Resolved]
